FAERS Safety Report 23320574 (Version 3)
Quarter: 2025Q1

REPORT INFORMATION
  Report Type: Spontaneous
  Country: US (occurrence: US)
  Receive Date: 20231220
  Receipt Date: 20250127
  Transmission Date: 20250409
  Serious: No
  Sender: PFIZER
  Company Number: US-PFIZER INC-PV202300199756

PATIENT
  Age: 75 Year
  Sex: Female
  Weight: 63.9 kg

DRUGS (1)
  1. CIPROFLOXACIN [Suspect]
     Active Substance: CIPROFLOXACIN

REACTIONS (2)
  - Drug hypersensitivity [Unknown]
  - Rash [Unknown]
